FAERS Safety Report 5763919-5 (Version None)
Quarter: 2008Q2

REPORT INFORMATION
  Report Type: 
  Country: None (occurrence: None)
  Receive Date: 20080606
  Receipt Date: 20080606
  Transmission Date: 20081010
  Serious: Yes (Other)
  Sender: FDA-Public Use
  Company Number: None

PATIENT
  Sex: Female
  Weight: 58.0604 kg

DRUGS (1)
  1. DIGITEK .25 MYLAN PHARMACEUTICALS ORR [Suspect]
     Indication: ARRHYTHMIA
     Dosage: 1 PILL 1 PER DAY PO
     Route: 048
     Dates: start: 20080420, end: 20080427

REACTIONS (3)
  - FURUNCLE [None]
  - PHARMACEUTICAL PRODUCT COMPLAINT [None]
  - RASH PRURITIC [None]
